FAERS Safety Report 5510684-2 (Version None)
Quarter: 2007Q4

REPORT INFORMATION
  Report Type: 
  Country: None (occurrence: None)
  Receive Date: 20071107
  Receipt Date: 20070926
  Transmission Date: 20080405
  Serious: Yes (Death)
  Sender: FDA-Public Use
  Company Number: B0460366A

PATIENT
  Age: 3 Month
  Sex: Female

DRUGS (3)
  1. PARACETAMOL + PSEUDOEPHEDRINE (FORMULATION UNKNOWN) (GENE (ACETAMINOPH [Suspect]
  2. DEXTROMETHORPHAN HBR (FORMULATIO9N UNKNOWN) (DEXTROMETHORPHAN) [Suspect]
  3. DOXYLAMINE (FORMULATION UNKNOWN) (DOXYLAMINE) [Suspect]

REACTIONS (3)
  - ANOXIC ENCEPHALOPATHY [None]
  - DRUG TOXICITY [None]
  - TIBIA FRACTURE [None]
